FAERS Safety Report 12478426 (Version 4)
Quarter: 2016Q4

REPORT INFORMATION
  Report Type: Spontaneous
  Country: US (occurrence: US)
  Receive Date: 20160618
  Receipt Date: 20161102
  Transmission Date: 20170207
  Serious: Yes (Death, Hospitalization)
  Sender: FDA-Public Use
  Company Number: US-JNJFOC-20160610256

PATIENT
  Age: 58 Year
  Sex: Male

DRUGS (4)
  1. XARELTO [Suspect]
     Active Substance: RIVAROXABAN
     Indication: THROMBOSIS PROPHYLAXIS
     Route: 048
     Dates: start: 20150817, end: 20150903
  2. XARELTO [Suspect]
     Active Substance: RIVAROXABAN
     Indication: THROMBOSIS PROPHYLAXIS
     Route: 048
  3. XARELTO [Suspect]
     Active Substance: RIVAROXABAN
     Indication: THROMBOSIS PROPHYLAXIS
     Route: 048
     Dates: start: 20150817, end: 20150903
  4. XARELTO [Suspect]
     Active Substance: RIVAROXABAN
     Indication: THROMBOSIS PROPHYLAXIS
     Route: 048

REACTIONS (8)
  - Acute kidney injury [Fatal]
  - Retroperitoneal haematoma [Unknown]
  - Respiratory failure [Unknown]
  - Pneumonia [Fatal]
  - Gastrointestinal haemorrhage [Unknown]
  - Deep vein thrombosis [Fatal]
  - Renal haemorrhage [Unknown]
  - Cryoglobulinaemia [Fatal]

NARRATIVE: CASE EVENT DATE: 20150903
